FAERS Safety Report 11167217 (Version 1)
Quarter: 2015Q2

REPORT INFORMATION
  Report Type: Spontaneous
  Country: FR (occurrence: FR)
  Receive Date: 20150605
  Receipt Date: 20150605
  Transmission Date: 20150821
  Serious: Yes (Hospitalization)
  Sender: FDA-Public Use
  Company Number: FR-JNJFOC-20150603249

PATIENT
  Age: 52 Year
  Sex: Female

DRUGS (5)
  1. REMICADE [Suspect]
     Active Substance: INFLIXIMAB
     Indication: CROHN^S DISEASE
     Route: 042
     Dates: start: 20150323
  2. REMICADE [Suspect]
     Active Substance: INFLIXIMAB
     Indication: CROHN^S DISEASE
     Route: 042
     Dates: start: 2009
  3. REMICADE [Suspect]
     Active Substance: INFLIXIMAB
     Indication: VARICOSE VEIN
     Route: 042
     Dates: start: 20150323
  4. SCLEREMO [Suspect]
     Active Substance: CHROMIC POTASSIUM SULFATE
     Indication: VARICOSE VEIN
     Route: 042
     Dates: start: 20150323
  5. REMICADE [Suspect]
     Active Substance: INFLIXIMAB
     Indication: VARICOSE VEIN
     Route: 042
     Dates: start: 2009

REACTIONS (3)
  - Hypersensitivity vasculitis [Unknown]
  - Vascular purpura [Unknown]
  - Proteinuria [Unknown]

NARRATIVE: CASE EVENT DATE: 20150324
